FAERS Safety Report 4562668-9 (Version None)
Quarter: 2005Q1

REPORT INFORMATION
  Report Type: 
  Country: None (occurrence: None)
  Receive Date: 20050124
  Receipt Date: 20050110
  Transmission Date: 20050727
  Serious: Yes (Hospitalization, Other)
  Sender: FDA-Public Use
  Company Number: 2005009325

PATIENT
  Age: 8 Year
  Sex: Male

DRUGS (2)
  1. PREDNISOLONE [Suspect]
     Indication: ARTHRITIS
     Dosage: UNKNOWN (1.5 MG/KG, UNKNOWN)
     Route: 065
  2. COLCHICINE (COLCHICINE) [Concomitant]

REACTIONS (6)
  - ARTHRALGIA [None]
  - ILEUS [None]
  - INTESTINAL PERFORATION [None]
  - MUSCULAR WEAKNESS [None]
  - POST PROCEDURAL COMPLICATION [None]
  - VASCULITIS [None]
